FAERS Safety Report 9525633 (Version 1)
Quarter: 2013Q1

REPORT INFORMATION
  Report Type: Spontaneous
  Country: US (occurrence: None)
  Receive Date: 20130305
  Receipt Date: 20130305
  Transmission Date: 20140127
  Serious: Yes (Hospitalization, Other)
  Sender: FDA-Public Use
  Company Number: 163-21880-12023097

PATIENT
  Age: 86 Year
  Sex: Female

DRUGS (2)
  1. REVLIMID [Suspect]
     Indication: PLASMA CELL MYELOMA
     Dosage: 5 MG, 1 IN 1 D, PO
     Route: 048
     Dates: start: 20120120
  2. PLAVIX (CLOPIDOGREL SULFATE) (UNKNOWN) [Concomitant]

REACTIONS (2)
  - Gastrointestinal haemorrhage [None]
  - Myocardial infarction [None]
